FAERS Safety Report 18900055 (Version 2)
Quarter: 2021Q1

REPORT INFORMATION
  Report Type: Report from Study
  Country: TR (occurrence: TR)
  Receive Date: 20210216
  Receipt Date: 20210315
  Transmission Date: 20210420
  Serious: Yes (Death)
  Sender: FDA-Public Use
  Company Number: TR-ROCHE-2770108

PATIENT
  Age: 77 Year
  Sex: Male
  Weight: 65 kg

DRUGS (6)
  1. SINORETIK [Concomitant]
     Indication: HYPERTENSION
     Route: 048
  2. ISOPTIN [Concomitant]
     Active Substance: VERAPAMIL HYDROCHLORIDE
     Indication: HYPERTENSION
     Route: 048
  3. XGEVA [Concomitant]
     Active Substance: DENOSUMAB
     Route: 030
     Dates: start: 20200128
  4. DELTACORTRIL [Concomitant]
     Active Substance: PREDNISOLONE
     Indication: HYPOPHYSITIS
     Dates: start: 20200717
  5. ATEZOLIZUMAB. [Suspect]
     Active Substance: ATEZOLIZUMAB
     Indication: NON-SMALL CELL LUNG CANCER
     Dosage: THE DATE OF MOST RECENT DOSE OF ATEZOLIZUMAB (1200 MG) PRIOR TO SAE (SERIOUS ADVERSE EVENT) AND AE O
     Route: 041
     Dates: start: 20190809
  6. TAMPROST [Concomitant]
     Active Substance: TAMSULOSIN HYDROCHLORIDE
     Indication: BENIGN PROSTATIC HYPERPLASIA
     Route: 048

REACTIONS (1)
  - Metastases to central nervous system [Fatal]

NARRATIVE: CASE EVENT DATE: 20201204
